FAERS Safety Report 21896052 (Version 2)
Quarter: 2023Q1

REPORT INFORMATION
  Report Type: Spontaneous
  Country: ES (occurrence: ES)
  Receive Date: 20230123
  Receipt Date: 20230315
  Transmission Date: 20230418
  Serious: Yes (Death)
  Sender: FDA-Public Use
  Company Number: ES-JNJFOC-20230137552

PATIENT
  Age: 88 Year
  Sex: Female
  Weight: 73 kg

DRUGS (19)
  1. TREMFYA [Suspect]
     Active Substance: GUSELKUMAB
     Indication: Product used for unknown indication
     Route: 065
     Dates: start: 20201013, end: 20210122
  2. TREMFYA [Suspect]
     Active Substance: GUSELKUMAB
     Route: 065
     Dates: start: 20210410, end: 20210717
  3. FEBUXOSTAT [Concomitant]
     Active Substance: FEBUXOSTAT
     Indication: Hyperuricaemia
  4. WARFARIN SODIUM [Concomitant]
     Active Substance: WARFARIN SODIUM
     Indication: Atrial fibrillation
  5. ALPRAZOLAM [Concomitant]
     Active Substance: ALPRAZOLAM
     Indication: Anxiety
  6. ALPRAZOLAM [Concomitant]
     Active Substance: ALPRAZOLAM
     Indication: Depression
  7. ATORVASTATIN [Concomitant]
     Active Substance: ATORVASTATIN
     Indication: Dyslipidaemia
  8. BUDESONIDE [Concomitant]
     Active Substance: BUDESONIDE
     Indication: Respiratory distress
  9. ENALAPRIL [Concomitant]
     Active Substance: ENALAPRIL
     Indication: Hypertension
  10. HYDRAPRESS [Concomitant]
     Indication: Hypertension
  11. INSULIN HUMAN [Concomitant]
     Active Substance: INSULIN HUMAN
     Indication: Diabetes mellitus
  12. LYRICA [Concomitant]
     Active Substance: PREGABALIN
     Indication: Pain
  13. OMEPRAZOLE [Concomitant]
     Active Substance: OMEPRAZOLE
     Indication: Gastrointestinal disorder therapy
  14. ACETAMINOPHEN [Concomitant]
     Active Substance: ACETAMINOPHEN
     Indication: Pain
  15. PAROXETINE [Concomitant]
     Active Substance: PAROXETINE
     Indication: Depression
  16. PAROXETINE [Concomitant]
     Active Substance: PAROXETINE
     Indication: Anxiety
  17. PREDNISONE [Concomitant]
     Active Substance: PREDNISONE
     Indication: Psoriatic arthropathy
  18. FUROSEMIDE [Concomitant]
     Active Substance: FUROSEMIDE
  19. ATROVENT [Concomitant]
     Active Substance: IPRATROPIUM BROMIDE

REACTIONS (1)
  - COVID-19 pneumonia [Fatal]

NARRATIVE: CASE EVENT DATE: 20210712
